FAERS Safety Report 5140965-6 (Version None)
Quarter: 2006Q4

REPORT INFORMATION
  Report Type: 
  Country: None (occurrence: None)
  Receive Date: 20061027
  Receipt Date: 20061027
  Transmission Date: 20070319
  Serious: Yes (Death, Life-Threatening)
  Sender: FDA-Public Use
  Company Number: None

PATIENT
  Age: 40 Year
  Sex: Male
  Weight: 97.5234 kg

DRUGS (1)
  1. KETEK  UNSURE  AVENTIS [Suspect]
     Indication: PSORIASIS
     Dosage: 400MG TWICE A DAY PO
     Route: 048
     Dates: start: 20060706, end: 20060730

REACTIONS (2)
  - HEPATOCELLULAR DAMAGE [None]
  - MYOCARDIAL INFARCTION [None]
